FAERS Safety Report 10770437 (Version 2)
Quarter: 2015Q1

REPORT INFORMATION
  Report Type: Report from Study
  Country: JP (occurrence: JP)
  Receive Date: 20150206
  Receipt Date: 20150227
  Transmission Date: 20150721
  Serious: Yes (Other)
  Sender: FDA-Public Use
  Company Number: JP-TEVA-539037USA

PATIENT
  Age: 15 Year
  Sex: Male

DRUGS (2)
  1. GALZIN [Suspect]
     Active Substance: ZINC ACETATE
     Dosage: 450 MILLIGRAM DAILY;
     Route: 048
     Dates: start: 20141003
  2. GALZIN [Suspect]
     Active Substance: ZINC ACETATE
     Indication: HEPATO-LENTICULAR DEGENERATION
     Dosage: 75 MILLIGRAM DAILY;
     Route: 048
     Dates: start: 20091003

REACTIONS (1)
  - Renal tubular disorder [Not Recovered/Not Resolved]

NARRATIVE: CASE EVENT DATE: 20101227
